FAERS Safety Report 16675429 (Version 1)
Quarter: 2019Q3

REPORT INFORMATION
  Report Type: Spontaneous
  Country: PL (occurrence: PL)
  Receive Date: 20190806
  Receipt Date: 20190806
  Transmission Date: 20191004
  Serious: Yes (Other)
  Sender: FDA-Public Use
  Company Number: PHHY2019PL180841

PATIENT

DRUGS (1)
  1. HEPARIN [Suspect]
     Active Substance: HEPARIN SODIUM
     Indication: ANTICOAGULANT THERAPY
     Dosage: 5.000-10.000 IU, UNK
     Route: 065

REACTIONS (3)
  - Coagulopathy [Recovering/Resolving]
  - Nervous system disorder [Recovering/Resolving]
  - Ischaemic stroke [Recovering/Resolving]
